FAERS Safety Report 21759565 (Version 3)
Quarter: 2022Q4

REPORT INFORMATION
  Report Type: Report from Study
  Country: US (occurrence: US)
  Receive Date: 20221221
  Receipt Date: 20221226
  Transmission Date: 20230113
  Serious: Yes (Hospitalization, Other)
  Sender: FDA-Public Use
  Company Number: US-ABBVIE-4244227

PATIENT
  Age: 78 Year
  Sex: Female
  Weight: 109 kg

DRUGS (2)
  1. HUMIRA [Suspect]
     Active Substance: ADALIMUMAB
     Indication: Crohn^s disease
     Route: 058
     Dates: start: 2018, end: 20220926
  2. HUMIRA [Suspect]
     Active Substance: ADALIMUMAB
     Dosage: CITRATE FREE FORM STRENGTH- 40 MG
     Route: 058

REACTIONS (9)
  - Dyspnoea [Recovered/Resolved]
  - Malaise [Recovering/Resolving]
  - Cardiac operation [Recovered/Resolved]
  - Pericardial disease [Recovering/Resolving]
  - Cough [Not Recovered/Not Resolved]
  - Dyspnoea [Recovered/Resolved]
  - Catheterisation cardiac [Unknown]
  - Mitral valve replacement [Unknown]
  - Vascular graft [Unknown]

NARRATIVE: CASE EVENT DATE: 20221005
